FAERS Safety Report 12460643 (Version 1)
Quarter: 2016Q2

REPORT INFORMATION
  Report Type: Report from Study
  Country: US (occurrence: US)
  Receive Date: 20160613
  Receipt Date: 20160613
  Transmission Date: 20160815
  Serious: Yes (Death)
  Sender: FDA-Public Use
  Company Number: US-009507513-1606USA003060

PATIENT
  Sex: Male

DRUGS (1)
  1. VYTORIN [Suspect]
     Active Substance: EZETIMIBE\SIMVASTATIN
     Dosage: STRENGHT 10-40 (UNITS NOT PROVIDED)
     Route: 048
     Dates: start: 20120720

REACTIONS (1)
  - Accident [Fatal]
